FAERS Safety Report 7817588-0 (Version None)
Quarter: 2011Q4

REPORT INFORMATION
  Report Type: 
  Country: None (occurrence: None)
  Receive Date: 20111017
  Receipt Date: 20111012
  Transmission Date: 20120403
  Serious: Yes (Death, Other)
  Sender: FDA-Public Use
  Company Number: PHHY2011IT90655

PATIENT
  Age: 17 Year
  Sex: Male

DRUGS (6)
  1. METHOTREXATE [Concomitant]
  2. ANTI-THYMOCYTE GLOBULIN NOS [Concomitant]
  3. CYCLOSPORINE [Suspect]
     Indication: STEM CELL TRANSPLANT
     Dosage: UNK
  4. BUSULFAN [Concomitant]
  5. L-PAM [Concomitant]
  6. CYCLOPHOSPHAMIDE [Concomitant]

REACTIONS (4)
  - STATUS EPILEPTICUS [None]
  - COMPLICATIONS OF BONE MARROW TRANSPLANT [None]
  - POSTERIOR REVERSIBLE ENCEPHALOPATHY SYNDROME [None]
  - NEUROTOXICITY [None]
